FAERS Safety Report 13661246 (Version 1)
Quarter: 2017Q2

REPORT INFORMATION
  Report Type: Report from Study
  Country: US (occurrence: US)
  Receive Date: 20170616
  Receipt Date: 20170616
  Transmission Date: 20170830
  Serious: No
  Sender: FDA-Public Use
  Company Number: US-US WORLDMEDS, LLC-USW201701-000155

PATIENT
  Sex: Female
  Weight: 63.95 kg

DRUGS (20)
  1. NEUPRO [Concomitant]
     Active Substance: ROTIGOTINE
     Route: 062
  2. ESTRACE [Concomitant]
     Active Substance: ESTRADIOL
  3. IBANDRA [Concomitant]
  4. OMEPRAZOLE. [Concomitant]
     Active Substance: OMEPRAZOLE
  5. VITAMIN D3 [Concomitant]
     Active Substance: CHOLECALCIFEROL
  6. CARBIDOPA/ LEVODOPA [Concomitant]
     Active Substance: CARBIDOPA\LEVODOPA
  7. DULOXETINE. [Concomitant]
     Active Substance: DULOXETINE
  8. METOPROLOL ER [Concomitant]
     Active Substance: METOPROLOL SUCCINATE
  9. COLACE [Concomitant]
     Active Substance: DOCUSATE SODIUM
  10. POTASSIUM CHLORIDE. [Concomitant]
     Active Substance: POTASSIUM CHLORIDE
  11. MEGARED [Concomitant]
  12. FUROSEMIDE. [Concomitant]
     Active Substance: FUROSEMIDE
  13. IPRATROPIUM BROMIDE. [Concomitant]
     Active Substance: IPRATROPIUM BROMIDE
  14. LOTEMAX [Concomitant]
     Active Substance: LOTEPREDNOL ETABONATE
  15. NASONEX [Concomitant]
     Active Substance: MOMETASONE FUROATE
  16. LATANOPROST. [Concomitant]
     Active Substance: LATANOPROST
     Indication: EYE DISORDER
  17. CARBIDOPA/ LEVODOPA [Concomitant]
     Active Substance: CARBIDOPA\LEVODOPA
  18. SYSTANE (HYPROMELLOSE 2910 (4000 MPA.S)) [Concomitant]
     Active Substance: HYPROMELLOSE 2910 (4000 MPA.S)
  19. APOKYN [Suspect]
     Active Substance: APOMORPHINE HYDROCHLORIDE
     Indication: PARKINSON^S DISEASE
     Route: 058
  20. CA CITRATE [Concomitant]

REACTIONS (4)
  - Headache [Recovered/Resolved]
  - Injection site bruising [Recovered/Resolved]
  - Neck pain [Recovered/Resolved]
  - Feeling abnormal [Recovered/Resolved]
